FAERS Safety Report 6444351-8 (Version None)
Quarter: 2009Q4

REPORT INFORMATION
  Report Type: 
  Country: None (occurrence: None)
  Receive Date: 20091118
  Receipt Date: 20091112
  Transmission Date: 20100525
  Serious: Yes (Hospitalization, Other)
  Sender: FDA-Public Use
  Company Number: US-ELI_LILLY_AND_COMPANY-US200909006395

PATIENT
  Sex: Female

DRUGS (3)
  1. HUMALOG MIX 75/25 [Suspect]
     Indication: DIABETES MELLITUS
     Dosage: UNK, UNK
     Dates: start: 20060901, end: 20090310
  2. LISINOPRIL HYDROCHLORTHIAZID [Concomitant]
  3. ZANTAC [Concomitant]

REACTIONS (3)
  - BLOOD GLUCOSE DECREASED [None]
  - NEUROENDOCRINE CARCINOMA [None]
  - PROCEDURAL PAIN [None]
